FAERS Safety Report 25537610 (Version 2)
Quarter: 2025Q4

REPORT INFORMATION
  Report Type: Report from Study
  Country: VN (occurrence: VN)
  Receive Date: 20250710
  Receipt Date: 20251003
  Transmission Date: 20260117
  Serious: Yes (Hospitalization)
  Sender: ROCHE
  Company Number: VN-ROCHE-10000333747

PATIENT
  Age: 73 Year
  Sex: Female

DRUGS (1)
  1. ALECENSA [Suspect]
     Active Substance: ALECTINIB HYDROCHLORIDE
     Indication: Non-small cell lung cancer metastatic
     Route: 048
     Dates: start: 20231027

REACTIONS (4)
  - Vascular occlusion [Recovered/Resolved]
  - Pyrexia [Recovered/Resolved]
  - Vestibular disorder [Recovered/Resolved]
  - Gastrointestinal disorder [Recovered/Resolved]
